FAERS Safety Report 11297251 (Version 1)
Quarter: 2015Q3

REPORT INFORMATION
  Report Type: Spontaneous
  Country: US (occurrence: US)
  Receive Date: 20150722
  Receipt Date: 20150722
  Transmission Date: 20151125
  Serious: No
  Sender: FDA-Public Use
  Company Number: US-ELI_LILLY_AND_COMPANY-US201103008462

PATIENT
  Age: 47 Year

DRUGS (1)
  1. EFFIENT [Suspect]
     Active Substance: PRASUGREL HYDROCHLORIDE
     Indication: MYOCARDIAL INFARCTION
     Dosage: 10 MG ONCE DAILY
     Route: 048
     Dates: start: 20110304

REACTIONS (1)
  - Contraindication to medical treatment [Unknown]

NARRATIVE: CASE EVENT DATE: 20110304
